FAERS Safety Report 12479642 (Version 3)
Quarter: 2016Q3

REPORT INFORMATION
  Report Type: Spontaneous
  Country: IE (occurrence: IE)
  Receive Date: 20160620
  Receipt Date: 20160725
  Transmission Date: 20161109
  Serious: Yes (Other)
  Sender: FDA-Public Use
  Company Number: IE-BAYER-2016-117476

PATIENT
  Sex: Female

DRUGS (1)
  1. CLARITINE [Suspect]
     Active Substance: LORATADINE
     Dosage: 1 DF, OM

REACTIONS (2)
  - Depressed level of consciousness [None]
  - Somnolence [None]
